FAERS Safety Report 6759896-0 (Version None)
Quarter: 2010Q2

REPORT INFORMATION
  Report Type: 
  Country: None (occurrence: None)
  Receive Date: 20100608
  Receipt Date: 20100525
  Transmission Date: 20101027
  Serious: Yes (Hospitalization)
  Sender: FDA-Public Use
  Company Number: BR-MEDIMMUNE-MEDI-0011240

PATIENT
  Sex: Male
  Weight: 7.8 kg

DRUGS (5)
  1. SYNAGIS [Suspect]
     Route: 030
     Dates: start: 20091001, end: 20100428
  2. PROTOVIT [Concomitant]
     Indication: VITAMIN SUPPLEMENTATION
     Route: 048
  3. FERROUS SULFATE TAB [Concomitant]
     Indication: VITAMIN SUPPLEMENTATION
     Route: 048
  4. IPRATROPIUM BROMIDE [Concomitant]
  5. FENOTEROL HYDROBROMIDE [Concomitant]

REACTIONS (4)
  - DENGUE FEVER [None]
  - FATIGUE [None]
  - PLATELET COUNT DECREASED [None]
  - PNEUMONIA [None]
